FAERS Safety Report 10070232 (Version 1)
Quarter: 2014Q2

REPORT INFORMATION
  Report Type: Spontaneous
  Country: IT (occurrence: None)
  Receive Date: 20140408
  Receipt Date: 20140408
  Transmission Date: 20141212
  Serious: Yes (Other)
  Sender: FDA-Public Use
  Company Number: SYM-2014-19400

PATIENT
  Age: 80 Year
  Sex: Male

DRUGS (4)
  1. ELONTRIL (BUPROPION HYDROCHLORIDE) (PROLONGED-RELEASE TABLET) (BUPROPION HYDROCHLORIDE) [Suspect]
     Indication: DEPRESSION
     Route: 048
     Dates: start: 20131114, end: 20131124
  2. PLAVIX (CLOPIDOGREL BISULFATE) [Concomitant]
  3. JANUVIA (SITAGLIPTIN PHOSPHATE) [Concomitant]
  4. CRESTOR (ROSUVASTATIN CALCIUM) [Concomitant]

REACTIONS (4)
  - Tremor [None]
  - Fall [None]
  - Balance disorder [None]
  - Multiple injuries [None]
